FAERS Safety Report 19620261 (Version 1)
Quarter: 2021Q3

REPORT INFORMATION
  Report Type: Spontaneous
  Country: US (occurrence: US)
  Receive Date: 20210727
  Receipt Date: 20210727
  Transmission Date: 20211014
  Serious: Yes (Hospitalization)
  Sender: FDA-Public Use
  Company Number: None

PATIENT
  Age: 90 Year
  Sex: Female

DRUGS (10)
  1. VITAMIN C 500MG [Concomitant]
  2. LENVIMA [Suspect]
     Active Substance: LENVATINIB
     Indication: NEOPLASM MALIGNANT
     Route: 048
     Dates: start: 20210702, end: 20210725
  3. ATORVASTATIN 10MG [Concomitant]
     Active Substance: ATORVASTATIN
  4. TRADJENTA [Concomitant]
     Active Substance: LINAGLIPTIN
  5. TYLENOL [Concomitant]
     Active Substance: ACETAMINOPHEN
  6. LEVOTHYROXINE 50MCG [Concomitant]
     Active Substance: LEVOTHYROXINE
  7. BIOTIN [Concomitant]
     Active Substance: BIOTIN
  8. LISINOPRIL 30MG [Concomitant]
     Active Substance: LISINOPRIL
  9. B12 1000MCG [Concomitant]
  10. LASIX 20MG [Concomitant]

REACTIONS (3)
  - Blood glucose abnormal [None]
  - Hypertension [None]
  - Loss of consciousness [None]

NARRATIVE: CASE EVENT DATE: 20210721
